FAERS Safety Report 16805968 (Version 1)
Quarter: 2019Q3

REPORT INFORMATION
  Report Type: Spontaneous
  Country: US (occurrence: US)
  Receive Date: 20190913
  Receipt Date: 20190913
  Transmission Date: 20191005
  Serious: No
  Sender: FDA-Public Use
  Company Number: US-BIOGEN-2019BI00785062

PATIENT
  Sex: Male

DRUGS (3)
  1. ROPINROLE [Concomitant]
     Active Substance: ROPINIROLE
     Route: 065
  2. VITAMIND3 [Concomitant]
     Dosage: 2000 IU
     Route: 065
  3. TECFIDERA [Suspect]
     Active Substance: DIMETHYL FUMARATE
     Indication: MULTIPLE SCLEROSIS
     Route: 048

REACTIONS (2)
  - Flushing [Unknown]
  - Restless legs syndrome [Unknown]
